FAERS Safety Report 6791951-1 (Version None)
Quarter: 2010Q2

REPORT INFORMATION
  Report Type: 
  Country: None (occurrence: None)
  Receive Date: 20100624
  Receipt Date: 20081110
  Transmission Date: 20101027
  Serious: No
  Sender: FDA-Public Use
  Company Number: US-PFIZER INC-2008059413

PATIENT
  Sex: Female
  Weight: 56.7 kg

DRUGS (6)
  1. GEODON [Suspect]
     Indication: BIPOLAR DISORDER
     Route: 048
     Dates: start: 20070920, end: 20071003
  2. ADDERALL XR 10 [Concomitant]
  3. ADDERALL XR 10 [Concomitant]
  4. ADDERALL XR 10 [Concomitant]
  5. PROZAC [Concomitant]
  6. PRILOSEC [Concomitant]

REACTIONS (1)
  - TIC [None]
